FAERS Safety Report 4459472-9 (Version None)
Quarter: 2004Q3

REPORT INFORMATION
  Report Type: 
  Country: None (occurrence: None)
  Receive Date: 20040927
  Receipt Date: 20040830
  Transmission Date: 20050211
  Serious: Yes (Other)
  Sender: FDA-Public Use
  Company Number: PHRM2004FR02678

PATIENT
  Age: 18 Year
  Sex: Male
  Weight: 60 kg

DRUGS (2)
  1. TEGRETOL [Suspect]
     Indication: ABNORMAL BEHAVIOUR
     Dosage: 600 MG/DAY
     Route: 048
     Dates: start: 20040825, end: 20040829
  2. VALIUM [Concomitant]
     Indication: ANXIETY
     Dosage: 10 MG/DAY
     Route: 048
     Dates: start: 20031001

REACTIONS (5)
  - C-REACTIVE PROTEIN INCREASED [None]
  - HYPOKALAEMIA [None]
  - HYPONATRAEMIA [None]
  - PYREXIA [None]
  - URTICARIA [None]
